FAERS Safety Report 14528894 (Version 1)
Quarter: 2018Q1

REPORT INFORMATION
  Report Type: Spontaneous
  Country: US (occurrence: US)
  Receive Date: 20180213
  Receipt Date: 20180213
  Transmission Date: 20180509
  Serious: No
  Sender: FDA-Public Use
  Company Number: None

PATIENT
  Age: 61 Year
  Sex: Female
  Weight: 62.6 kg

DRUGS (1)
  1. SYNTHROID [Suspect]
     Active Substance: LEVOTHYROXINE SODIUM
     Indication: HYPOTHYROIDISM
     Route: 048

REACTIONS (7)
  - Dizziness [None]
  - Feeling jittery [None]
  - Hypersensitivity [None]
  - Nervousness [None]
  - Coordination abnormal [None]
  - Feeling abnormal [None]
  - Product formulation issue [None]

NARRATIVE: CASE EVENT DATE: 2000
